FAERS Safety Report 5429959-0 (Version None)
Quarter: 2007Q3

REPORT INFORMATION
  Report Type: 
  Country: None (occurrence: None)
  Receive Date: 20070829
  Receipt Date: 20070806
  Transmission Date: 20080115
  Serious: No
  Sender: FDA-Public Use
  Company Number: US-BOEHRINGER INGELHEIM PHARMACEUTICALS, INC.-2007-BP-17772BP

PATIENT
  Age: 85 Year
  Sex: Female
  Weight: 63 kg

DRUGS (11)
  1. AGGRENOX [Suspect]
     Indication: TRANSIENT ISCHAEMIC ATTACK
     Dosage: 50MG/400MG
     Route: 048
     Dates: start: 20070407, end: 20070408
  2. AGGRENOX [Suspect]
     Indication: CEREBROVASCULAR ACCIDENT PROPHYLAXIS
  3. AGGRENOX [Suspect]
     Indication: HYPERTENSION
  4. ZEGERID [Suspect]
     Indication: GASTROOESOPHAGEAL REFLUX DISEASE
     Route: 048
     Dates: start: 20070401, end: 20070416
  5. DILTIAZEM [Suspect]
     Indication: HYPERTENSION
     Dates: start: 20070401
  6. BENICAR [Concomitant]
  7. ASPIRIN [Concomitant]
  8. ATENOLOL [Concomitant]
  9. SKELAXIN [Concomitant]
  10. OSCAL 500-D [Concomitant]
  11. METROGEL [Concomitant]
     Indication: ROSACEA
     Route: 061

REACTIONS (11)
  - GROIN PAIN [None]
  - HEADACHE [None]
  - LOSS OF CONSCIOUSNESS [None]
  - MUSCLE SPASMS [None]
  - NAUSEA [None]
  - PAIN [None]
  - PAIN IN EXTREMITY [None]
  - PYREXIA [None]
  - RASH MACULAR [None]
  - RETCHING [None]
  - TACHYCARDIA [None]
